FAERS Safety Report 10007113 (Version 2)
Quarter: 2014Q1

REPORT INFORMATION
  Report Type: Spontaneous
  Country: US (occurrence: None)
  Receive Date: 20140311
  Receipt Date: 20140324
  Transmission Date: 20141002
  Serious: Yes (Hospitalization)
  Sender: FDA-Public Use
  Company Number: LISI20140016

PATIENT
  Age: 51 Year
  Sex: Male
  Weight: 85 kg

DRUGS (4)
  1. LISINOPRIL [Suspect]
     Indication: INTENTIONAL OVERDOSE
     Dosage: OVER A PERIOD OF 3 DAYS
     Route: 048
  2. LISINOPRIL [Suspect]
     Indication: HYPERTENSION
     Dosage: OVER A PERIOD OF 3 DAYS
     Route: 048
  3. HYDROCODONE BITARTRATE/ACETAMINOPHEN [Concomitant]
  4. ALPRAZOLAM ER TABLETS 0.5 (ALPRAZOLAM) [Concomitant]

REACTIONS (10)
  - Intentional overdose [None]
  - Speech disorder [None]
  - Incoherent [None]
  - Hallucination, visual [None]
  - Metabolic acidosis [None]
  - Rhabdomyolysis [None]
  - Confusional state [None]
  - Hyperkalaemia [None]
  - Haemodialysis [None]
  - Electrolyte imbalance [None]
